FAERS Safety Report 26020622 (Version 1)
Quarter: 2025Q4

REPORT INFORMATION
  Report Type: Spontaneous
  Country: US (occurrence: None)
  Receive Date: 20251107
  Receipt Date: 20251107
  Transmission Date: 20260117
  Serious: No
  Sender: FDA-CTU
  Company Number: None

PATIENT
  Age: 45 Year
  Sex: Female

DRUGS (11)
  1. XOLAIR [Suspect]
     Active Substance: OMALIZUMAB
     Dosage: OTHER FREQUENCY : EVERY 28 DAYS;?
     Route: 058
     Dates: start: 20190424
  2. ACYCLOVIR [Concomitant]
     Active Substance: ACYCLOVIR
  3. AZITHROMYCIN [Concomitant]
     Active Substance: AZITHROMYCIN
  4. CYCLOBENZAPRINE [Concomitant]
     Active Substance: CYCLOBENZAPRINE
  5. DEXAMETHASON ELX [Concomitant]
  6. FAMOTIDINE [Concomitant]
     Active Substance: FAMOTIDINE
  7. HYDROXYCHLOROQUINE [Concomitant]
     Active Substance: HYDROXYCHLOROQUINE
  8. LEVOCETIRIZI [Concomitant]
  9. MELOXICAM [Concomitant]
     Active Substance: MELOXICAM
  10. METHYLPR SS INJ [Concomitant]
  11. METHYLPRED TAB [Concomitant]

REACTIONS (3)
  - Cardiovascular disorder [None]
  - Inflammation [None]
  - Condition aggravated [None]

NARRATIVE: CASE EVENT DATE: 20251106
